FAERS Safety Report 10232286 (Version 1)
Quarter: 2014Q2

REPORT INFORMATION
  Report Type: Spontaneous
  Country: DE (occurrence: DE)
  Receive Date: 20140612
  Receipt Date: 20140612
  Transmission Date: 20141212
  Serious: Yes (Hospitalization, Other)
  Sender: FDA-Public Use
  Company Number: DE-DRREDDYS-GER/GER/14/0040889

PATIENT
  Age: 27 Year
  Sex: Male

DRUGS (11)
  1. SERTRALINE [Suspect]
     Indication: PRODUCT USED FOR UNKNOWN INDICATION
     Route: 048
     Dates: start: 20130311, end: 20130315
  2. SERTRALINE [Suspect]
     Route: 048
     Dates: start: 20130316, end: 20130319
  3. SERTRALINE [Suspect]
     Route: 048
     Dates: start: 20130320, end: 20130322
  4. SERTRALINE [Suspect]
     Route: 048
     Dates: start: 20130323, end: 20130329
  5. SERTRALINE [Suspect]
     Route: 048
     Dates: start: 20130330, end: 20130403
  6. SERTRALINE [Suspect]
     Route: 048
     Dates: start: 20130404, end: 20130421
  7. FLUOXETINE [Suspect]
     Indication: PRODUCT USED FOR UNKNOWN INDICATION
  8. SEROQUEL PROLONG [Concomitant]
     Indication: PRODUCT USED FOR UNKNOWN INDICATION
     Route: 048
     Dates: start: 20130212, end: 20130219
  9. SEROQUEL PROLONG [Concomitant]
     Route: 048
     Dates: start: 20130410
  10. LEVOTHYROXINE SODIUM [Concomitant]
     Indication: PRODUCT USED FOR UNKNOWN INDICATION
     Route: 048
  11. VIGANTOLETTEN [Concomitant]
     Indication: PRODUCT USED FOR UNKNOWN INDICATION
     Route: 048

REACTIONS (5)
  - Myalgia [Recovering/Resolving]
  - Blood creatine phosphokinase increased [Unknown]
  - Fatigue [Unknown]
  - Pruritus [Unknown]
  - Muscle twitching [Unknown]
